FAERS Safety Report 8201863-4 (Version None)
Quarter: 2012Q1

REPORT INFORMATION
  Report Type: 
  Country: None (occurrence: None)
  Receive Date: 20120312
  Receipt Date: 20120305
  Transmission Date: 20120608
  Serious: Yes (Death, Life-Threatening, Hospitalization)
  Sender: FDA-Public Use
  Company Number: AR-ELI_LILLY_AND_COMPANY-AR201203001139

PATIENT
  Sex: Male
  Weight: 41 kg

DRUGS (7)
  1. OMEPRAZOLE [Concomitant]
     Indication: PROPHYLAXIS
     Dosage: UNK
     Dates: start: 20111201
  2. CISPLATIN [Suspect]
     Indication: NON-SMALL CELL LUNG CANCER
     Dosage: 75 MG/M2, UNK
     Route: 042
     Dates: start: 20120207, end: 20120228
  3. METHADON HCL TAB [Concomitant]
     Indication: PAIN
     Dosage: UNK
     Dates: start: 20120125
  4. PEMETREXED [Suspect]
     Indication: NON-SMALL CELL LUNG CANCER
     Dosage: 500 MG/M2, UNK
     Route: 042
     Dates: start: 20120207
  5. FOLIC ACID [Concomitant]
     Indication: PROPHYLAXIS
     Dosage: UNK
     Dates: start: 20120125
  6. VITAMIN B-12 [Concomitant]
     Dosage: UNK
     Dates: start: 20120125
  7. DEXAMETHASONE [Concomitant]
     Indication: PROPHYLAXIS
     Dosage: UNK
     Dates: start: 20120227, end: 20120229

REACTIONS (3)
  - NEUTROPENIA [None]
  - PNEUMONIA [None]
  - STOMATITIS [None]
